FAERS Safety Report 13981924 (Version 3)
Quarter: 2017Q4

REPORT INFORMATION
  Report Type: Report from Study
  Country: None (occurrence: PR)
  Receive Date: 20170918
  Receipt Date: 20171214
  Transmission Date: 20180321
  Serious: Yes (Hospitalization, Other)
  Sender: FDA-Public Use
  Company Number: PR-ABBVIE-17K-131-2101365-00

PATIENT
  Age: 21 Year
  Sex: Male

DRUGS (6)
  1. HUMIRA [Suspect]
     Active Substance: ADALIMUMAB
     Indication: CROHN^S DISEASE
     Route: 058
     Dates: start: 20140610
  2. IMURAN [Suspect]
     Active Substance: AZATHIOPRINE
     Indication: CROHN^S DISEASE
     Route: 065
     Dates: start: 201405, end: 2014
  3. HUMIRA [Suspect]
     Active Substance: ADALIMUMAB
     Route: 058
     Dates: start: 2017
  4. METHOTREXATE. [Concomitant]
     Active Substance: METHOTREXATE
     Indication: CROHN^S DISEASE
     Dosage: 15 MG
     Dates: start: 2014, end: 201708
  5. HUMIRA [Suspect]
     Active Substance: ADALIMUMAB
     Route: 058
     Dates: start: 2017, end: 201708
  6. METHOTREXATE. [Concomitant]
     Active Substance: METHOTREXATE
     Indication: PROPHYLAXIS

REACTIONS (23)
  - Leukopenia [Unknown]
  - Hypothermia [Recovered/Resolved]
  - Pyrexia [Unknown]
  - Granuloma [Unknown]
  - Mediastinal mass [Not Recovered/Not Resolved]
  - Hypotension [Recovered/Resolved]
  - Sarcoidosis [Unknown]
  - Shock [Recovered/Resolved]
  - Colitis [Recovered/Resolved]
  - Swelling face [Not Recovered/Not Resolved]
  - Mesenteric neoplasm [Not Recovered/Not Resolved]
  - Blood alkaline phosphatase increased [Unknown]
  - Retroperitoneal neoplasm [Not Recovered/Not Resolved]
  - Hepatosplenomegaly [Unknown]
  - Infection [Unknown]
  - Headache [Recovered/Resolved]
  - Alanine aminotransferase increased [Unknown]
  - Aspartate aminotransferase increased [Unknown]
  - Autoimmune disorder [Unknown]
  - Pulmonary hilum mass [Not Recovered/Not Resolved]
  - Thrombocytopenia [Unknown]
  - Chills [Recovered/Resolved]
  - Pyrexia [Recovered/Resolved]

NARRATIVE: CASE EVENT DATE: 201407
